FAERS Safety Report 7612377-4 (Version None)
Quarter: 2011Q3

REPORT INFORMATION
  Report Type: 
  Country: None (occurrence: None)
  Receive Date: 20110716
  Receipt Date: 20110706
  Transmission Date: 20111222
  Serious: Yes (Other)
  Sender: FDA-Public Use
  Company Number: US-ASTRAZENECA-2011SE40404

PATIENT
  Sex: Female

DRUGS (2)
  1. TENORMIN [Suspect]
     Route: 048
  2. EXFORGE [Concomitant]
     Dosage: 5/160 MG

REACTIONS (2)
  - CEREBROVASCULAR ACCIDENT [None]
  - DIZZINESS [None]
